FAERS Safety Report 5874132-5 (Version None)
Quarter: 2008Q3

REPORT INFORMATION
  Report Type: 
  Country: None (occurrence: None)
  Receive Date: 20080903
  Receipt Date: 20080821
  Transmission Date: 20090109
  Serious: Yes (Life-Threatening, Hospitalization)
  Sender: FDA-Public Use
  Company Number: B0533996A

PATIENT
  Age: 68 Year
  Sex: Female

DRUGS (5)
  1. ROSIGLITAZONE MALEATE [Suspect]
     Indication: TYPE 2 DIABETES MELLITUS
  2. INSULIN (FORMULATION UNKNOWN) (INSULIN) [Suspect]
     Indication: TYPE 2 DIABETES MELLITUS
  3. SALICYLATE [Concomitant]
  4. ATORVASTATIN CALCIUM [Concomitant]
  5. CLARITHROMYCIN [Concomitant]

REACTIONS (11)
  - ACUTE PULMONARY OEDEMA [None]
  - CYANOSIS CENTRAL [None]
  - HAEMOGLOBIN DECREASED [None]
  - HYPERVOLAEMIA [None]
  - HYPOGLYCAEMIA [None]
  - MITRAL VALVE INCOMPETENCE [None]
  - OEDEMA PERIPHERAL [None]
  - PITTING OEDEMA [None]
  - PLEURAL EFFUSION [None]
  - PNEUMONIA [None]
  - WEIGHT DECREASED [None]
